FAERS Safety Report 15467633 (Version 2)
Quarter: 2018Q4

REPORT INFORMATION
  Report Type: Spontaneous
  Country: CZ (occurrence: CZ)
  Receive Date: 20181005
  Receipt Date: 20181113
  Transmission Date: 20190204
  Serious: Yes (Other)
  Sender: FDA-Public Use
  Company Number: CZ-BAUSCH-BL-2018-026983

PATIENT
  Age: 63 Year
  Sex: Male

DRUGS (4)
  1. IRINOTECAN HYDROCHLORIDE. [Suspect]
     Active Substance: IRINOTECAN HYDROCHLORIDE
     Indication: COLON CANCER METASTATIC
     Dosage: FOLFIRI REGIMEN
     Route: 065
     Dates: start: 201406
  2. FOLINIC ACID [Suspect]
     Active Substance: LEUCOVORIN
     Indication: COLON CANCER METASTATIC
     Route: 065
     Dates: start: 201406
  3. FLUOROURACIL. [Suspect]
     Active Substance: FLUOROURACIL
     Indication: COLON CANCER METASTATIC
     Dosage: FOLFIRI REGIMEN
     Route: 065
     Dates: start: 201406
  4. BEVACIZUMAB. [Suspect]
     Active Substance: BEVACIZUMAB
     Indication: COLON CANCER METASTATIC
     Route: 065
     Dates: start: 201406, end: 2014

REACTIONS (6)
  - Anaemia [Unknown]
  - Thrombocytopenia [Unknown]
  - Device related thrombosis [Unknown]
  - Diarrhoea [Unknown]
  - Stomatitis [Unknown]
  - Paraesthesia [Unknown]

NARRATIVE: CASE EVENT DATE: 2014
